FAERS Safety Report 15760975 (Version 1)
Quarter: 2018Q4

REPORT INFORMATION
  Report Type: Spontaneous
  Country: US (occurrence: US)
  Receive Date: 20181226
  Receipt Date: 20181226
  Transmission Date: 20190205
  Serious: No
  Sender: FDA-Public Use
  Company Number: US-PFIZER INC-2017332798

PATIENT
  Age: 2 Year
  Sex: Male
  Weight: 13.43 kg

DRUGS (2)
  1. GENOTROPIN MQ [Suspect]
     Active Substance: SOMATROPIN
     Indication: PRADER-WILLI SYNDROME
     Dosage: 0.2 MG, ALTERNATE DAY (1 DOSE AT NIGHT AT BEDTIME, 7 DAYS A WEEK)
     Route: 058
     Dates: start: 20160402
  2. GENOTROPIN MQ [Suspect]
     Active Substance: SOMATROPIN
     Dosage: 0.4 MG, ALTERNATE DAY (1 DOSE AT NIGHT AT BEDTIME, 7 DAYS A WEEK)
     Route: 058
     Dates: start: 20160402

REACTIONS (1)
  - Insulin-like growth factor increased [Unknown]

NARRATIVE: CASE EVENT DATE: 20180914
